FAERS Safety Report 22697534 (Version 2)
Quarter: 2025Q2

REPORT INFORMATION
  Report Type: Report from Study
  Country: CA (occurrence: CA)
  Receive Date: 20230712
  Receipt Date: 20250609
  Transmission Date: 20250716
  Serious: Yes (Other)
  Sender: TAKEDA
  Company Number: CA-TAKEDA-2022TUS083099

PATIENT
  Sex: Male
  Weight: 81 kg

DRUGS (7)
  1. HUMAN IMMUNOGLOBULIN G [Suspect]
     Active Substance: HUMAN IMMUNOGLOBULIN G
     Indication: Primary immunodeficiency syndrome
     Dosage: 7 GRAM, 1/WEEK
     Dates: start: 20200403
  2. HUMAN IMMUNOGLOBULIN G [Suspect]
     Active Substance: HUMAN IMMUNOGLOBULIN G
     Indication: Immunodeficiency
     Dosage: 7 GRAM, 1/WEEK
     Dates: start: 20200403
  3. SYMBICORT [Concomitant]
     Active Substance: BUDESONIDE\FORMOTEROL FUMARATE DIHYDRATE
     Dosage: UNK, BID
  4. DYMISTA [Concomitant]
     Active Substance: AZELASTINE HYDROCHLORIDE\FLUTICASONE PROPIONATE
     Dosage: 1 DOSAGE FORM, BID
  5. SINGULAIR [Concomitant]
     Active Substance: MONTELUKAST SODIUM
     Dosage: 10 MILLIGRAM, QD
  6. LYRICA [Concomitant]
     Active Substance: PREGABALIN
  7. VENTOLIN [Concomitant]
     Active Substance: ALBUTEROL SULFATE

REACTIONS (14)
  - Neuropathy peripheral [Unknown]
  - Blood immunoglobulin G increased [Unknown]
  - Anosmia [Unknown]
  - Ageusia [Unknown]
  - Rhinitis [Unknown]
  - Drooling [Unknown]
  - Upper respiratory tract infection [Unknown]
  - Uhthoff^s phenomenon [Unknown]
  - Stress [Unknown]
  - Viral infection [Unknown]
  - Liver function test increased [Unknown]
  - Asthma [Unknown]
  - Muscular weakness [Unknown]
  - Myalgia [Unknown]
